FAERS Safety Report 9774624 (Version 3)
Quarter: 2014Q1

REPORT INFORMATION
  Report Type: Spontaneous
  Country: JP (occurrence: JP)
  Receive Date: 20131220
  Receipt Date: 20140203
  Transmission Date: 20141002
  Serious: Yes (Other)
  Sender: FDA-Public Use
  Company Number: JP-NAPPMUNDI-GBR-2013-0016607

PATIENT
  Sex: Female

DRUGS (3)
  1. OXYCODONE HCL PR TABLET [Suspect]
     Indication: CANCER PAIN
     Dosage: 15 MG, DAILY
     Route: 048
     Dates: start: 20131105
  2. OXYCODONE HCL PR TABLET [Suspect]
     Dosage: 20 MG, DAILY
     Route: 048
     Dates: start: 201311, end: 20131104
  3. OXYCODONE HCL PR TABLET [Suspect]
     Dosage: 10 MG, DAILY
     Route: 048
     Dates: start: 201310, end: 201310

REACTIONS (1)
  - Delirium [Unknown]
